FAERS Safety Report 23836476 (Version 1)
Quarter: 2024Q2

REPORT INFORMATION
  Report Type: Spontaneous
  Country: US (occurrence: US)
  Receive Date: 20240509
  Receipt Date: 20240509
  Transmission Date: 20240716
  Serious: No
  Sender: FDA-Public Use
  Company Number: US-ELI_LILLY_AND_COMPANY-US202405004477

PATIENT
  Age: 58 Year
  Sex: Female

DRUGS (16)
  1. ZEPBOUND [Suspect]
     Active Substance: TIRZEPATIDE
     Indication: Blood cholesterol increased
     Dosage: 2.5 MG, UNKNOWN
     Route: 058
     Dates: start: 202401
  2. ZEPBOUND [Suspect]
     Active Substance: TIRZEPATIDE
     Indication: Blood cholesterol increased
     Dosage: 2.5 MG, UNKNOWN
     Route: 058
     Dates: start: 202401
  3. ZEPBOUND [Suspect]
     Active Substance: TIRZEPATIDE
     Indication: Blood cholesterol increased
     Dosage: 2.5 MG, UNKNOWN
     Route: 058
     Dates: start: 202401
  4. ZEPBOUND [Suspect]
     Active Substance: TIRZEPATIDE
     Indication: Blood cholesterol increased
     Dosage: 2.5 MG, UNKNOWN
     Route: 058
     Dates: start: 202401
  5. ZEPBOUND [Suspect]
     Active Substance: TIRZEPATIDE
     Indication: Body mass index increased
     Dosage: 5 MG, UNKNOWN
     Route: 058
  6. ZEPBOUND [Suspect]
     Active Substance: TIRZEPATIDE
     Indication: Body mass index increased
     Dosage: 5 MG, UNKNOWN
     Route: 058
  7. ZEPBOUND [Suspect]
     Active Substance: TIRZEPATIDE
     Indication: Body mass index increased
     Dosage: 5 MG, UNKNOWN
     Route: 058
  8. ZEPBOUND [Suspect]
     Active Substance: TIRZEPATIDE
     Indication: Body mass index increased
     Dosage: 5 MG, UNKNOWN
     Route: 058
  9. ZEPBOUND [Suspect]
     Active Substance: TIRZEPATIDE
     Indication: Blood cholesterol increased
     Dosage: 7.5 MG, UNKNOWN
     Route: 058
     Dates: start: 202404
  10. ZEPBOUND [Suspect]
     Active Substance: TIRZEPATIDE
     Indication: Blood cholesterol increased
     Dosage: 7.5 MG, UNKNOWN
     Route: 058
     Dates: start: 202404
  11. ZEPBOUND [Suspect]
     Active Substance: TIRZEPATIDE
     Indication: Blood cholesterol increased
     Dosage: 7.5 MG, UNKNOWN
     Route: 058
     Dates: start: 202404
  12. ZEPBOUND [Suspect]
     Active Substance: TIRZEPATIDE
     Indication: Blood cholesterol increased
     Dosage: 7.5 MG, UNKNOWN
     Route: 058
     Dates: start: 202404
  13. ZEPBOUND [Suspect]
     Active Substance: TIRZEPATIDE
     Indication: Body mass index increased
  14. ZEPBOUND [Suspect]
     Active Substance: TIRZEPATIDE
     Indication: Body mass index increased
  15. ZEPBOUND [Suspect]
     Active Substance: TIRZEPATIDE
     Indication: Body mass index increased
  16. ZEPBOUND [Suspect]
     Active Substance: TIRZEPATIDE
     Indication: Body mass index increased

REACTIONS (4)
  - Incorrect dose administered [Unknown]
  - Cold sweat [Recovered/Resolved]
  - Abdominal discomfort [Recovered/Resolved]
  - Nausea [Recovered/Resolved]
